FAERS Safety Report 11151173 (Version 1)
Quarter: 2015Q2

REPORT INFORMATION
  Report Type: Spontaneous
  Country: SK (occurrence: SK)
  Receive Date: 20150601
  Receipt Date: 20150601
  Transmission Date: 20150821
  Serious: Yes (Hospitalization)
  Sender: FDA-Public Use
  Company Number: SK-TEVA-566626ISR

PATIENT
  Age: 59 Year
  Sex: Female

DRUGS (1)
  1. EQUORAL [Suspect]
     Active Substance: CYCLOSPORINE
     Dosage: 200 MILLIGRAM DAILY;
     Route: 048

REACTIONS (1)
  - Renal stone removal [Recovered/Resolved]

NARRATIVE: CASE EVENT DATE: 2010
